FAERS Safety Report 5355526-3 (Version None)
Quarter: 2007Q2

REPORT INFORMATION
  Report Type: 
  Country: None (occurrence: None)
  Receive Date: 20070613
  Receipt Date: 20070608
  Transmission Date: 20071010
  Serious: Yes (Hospitalization)
  Sender: FDA-Public Use
  Company Number: DE-AVENTIS-200711485DE

PATIENT
  Age: 15 Year
  Sex: Female

DRUGS (1)
  1. TELFAST                            /01314201/ [Suspect]
     Route: 048
     Dates: start: 20070606, end: 20070607

REACTIONS (8)
  - ATRIOVENTRICULAR BLOCK [None]
  - BRADYCARDIA [None]
  - CONVULSION [None]
  - DIZZINESS [None]
  - ELECTROCARDIOGRAM CHANGE [None]
  - ENURESIS [None]
  - EXTRASYSTOLES [None]
  - SYNCOPE [None]
